FAERS Safety Report 8403466-5 (Version None)
Quarter: 2012Q2

REPORT INFORMATION
  Report Type: 
  Country: None (occurrence: None)
  Receive Date: 20120601
  Receipt Date: 20120521
  Transmission Date: 20120825
  Serious: Yes (Hospitalization, Disabling, Other)
  Sender: FDA-Public Use
  Company Number: BR-ROCHE-1059795

PATIENT
  Sex: Female

DRUGS (11)
  1. BUDESONIDE [Suspect]
     Indication: CHRONIC OBSTRUCTIVE PULMONARY DISEASE
     Dosage: 12/400 MCG 60/60 (FUMARATE/BUDESONIDE)
     Dates: end: 20120424
  2. RABEPRAZOLE SODIUM [Concomitant]
  3. INDAPEN [Concomitant]
  4. LONAZOLAC CALCIUM [Concomitant]
  5. SIMVACOR [Concomitant]
  6. CORTISONE ACETATE [Concomitant]
  7. SINGULAIR [Concomitant]
  8. BAMIFIX [Concomitant]
  9. FLUTICASONE PROPIONATE/SALMETEROL [Concomitant]
  10. XOLAIR [Suspect]
     Indication: DYSPNOEA
     Route: 058
  11. SPIRIVA [Concomitant]

REACTIONS (8)
  - LUNG INFECTION [None]
  - ANKLE FRACTURE [None]
  - FALL [None]
  - MIGRAINE [None]
  - DIVERTICULITIS [None]
  - ASTHMA [None]
  - FIBROMYALGIA [None]
  - PULMONARY CONGESTION [None]
